FAERS Safety Report 9654869 (Version 2)
Quarter: 2014Q1

REPORT INFORMATION
  Report Type: Spontaneous
  Country: JP (occurrence: JP)
  Receive Date: 20131029
  Receipt Date: 20140313
  Transmission Date: 20141002
  Serious: Yes (Other)
  Sender: FDA-Public Use
  Company Number: JP-BAXTER-2013BAX042545

PATIENT
  Age: 18 Year
  Sex: 0

DRUGS (4)
  1. ENDOXAN 1G [Suspect]
     Indication: OSTEOSARCOMA
  2. CELLTOP 100 MG/5 ML, SOLUTION INJECTABLE POUR PERFUSION [Suspect]
     Indication: OSTEOSARCOMA
  3. DOXORUBICIN [Suspect]
     Indication: OSTEOSARCOMA
  4. RANDA [Suspect]
     Indication: OSTEOSARCOMA

REACTIONS (1)
  - Thyroid neoplasm [Recovered/Resolved]
